FAERS Safety Report 10790074 (Version 2)
Quarter: 2017Q2

REPORT INFORMATION
  Report Type: Report from Study
  Country: MX (occurrence: MX)
  Receive Date: 20150212
  Receipt Date: 20170426
  Transmission Date: 20170829
  Serious: Yes (Other)
  Sender: FDA-Public Use
  Company Number: PHHY2015MX017030

PATIENT
  Age: 82 Year
  Sex: Female

DRUGS (6)
  1. EUTIROX [Concomitant]
     Active Substance: LEVOTHYROXINE SODIUM
     Indication: THYROID DISORDER
     Dosage: 1 DF, QD
     Route: 065
  2. METOPROLOL. [Concomitant]
     Active Substance: METOPROLOL
     Indication: HEART RATE ABNORMAL
  3. DIOVAN [Suspect]
     Active Substance: VALSARTAN
     Indication: HYPERTENSION
     Dosage: 1 DF, QD
     Route: 065
  4. METOPROLOL. [Concomitant]
     Active Substance: METOPROLOL
     Indication: BLOOD PRESSURE ABNORMAL
     Dosage: 1.5 OT, QD, ONE IN THE MORNING AND HALF AT NIGHTS
     Route: 065
  5. ASPIRIN PROTECT [Concomitant]
     Active Substance: ASPIRIN
     Indication: PRODUCT USED FOR UNKNOWN INDICATION
     Route: 065
  6. DIOVAN [Suspect]
     Active Substance: VALSARTAN
     Dosage: 1 DF, BID (1 IN THE MORNING AND ONE AT NIGHT)
     Route: 065

REACTIONS (5)
  - Influenza like illness [Unknown]
  - Ovarian cancer [Unknown]
  - Gastritis [Unknown]
  - Blood pressure increased [Unknown]
  - Blood cholesterol increased [Unknown]

NARRATIVE: CASE EVENT DATE: 201612
